FAERS Safety Report 16173191 (Version 1)
Quarter: 2019Q2

REPORT INFORMATION
  Report Type: Spontaneous
  Country: IT (occurrence: IT)
  Receive Date: 20190409
  Receipt Date: 20190409
  Transmission Date: 20190711
  Serious: Yes (Hospitalization)
  Sender: FDA-Public Use
  Company Number: IT-SUN PHARMACEUTICAL INDUSTRIES LTD-2019RR-204469

PATIENT
  Age: 67 Year
  Sex: Male

DRUGS (1)
  1. OXALIPLATINO SUN 5 MG/ML, CONCENTRATO PER SOLUZIONE PER INFUSIONE [Suspect]
     Active Substance: OXALIPLATIN
     Indication: COLON CANCER METASTATIC
     Dosage: 170 MILLIGRAM, CYCLICAL
     Route: 042
     Dates: start: 20190221, end: 20190221

REACTIONS (5)
  - Oxygen saturation decreased [Recovering/Resolving]
  - Feeling hot [Recovering/Resolving]
  - Malaise [Recovering/Resolving]
  - Respiratory acidosis [Recovering/Resolving]
  - Hypotension [Recovering/Resolving]

NARRATIVE: CASE EVENT DATE: 20190221
